FAERS Safety Report 4990189-8 (Version None)
Quarter: 2006Q2

REPORT INFORMATION
  Report Type: 
  Country: None (occurrence: None)
  Receive Date: 20060503
  Receipt Date: 20050825
  Transmission Date: 20061013
  Serious: Yes (Life-Threatening, Hospitalization, Other)
  Sender: FDA-Public Use
  Company Number: US-MERCK-0508USA04197

PATIENT
  Age: 73 Year
  Sex: Female
  Weight: 67 kg

DRUGS (9)
  1. VIOXX [Suspect]
     Indication: ARTHRALGIA
     Route: 048
  2. VIOXX [Suspect]
     Indication: OSTEOARTHRITIS
     Route: 048
  3. EVISTA [Concomitant]
     Route: 065
  4. PLAVIX [Concomitant]
     Indication: MIGRAINE WITH AURA
     Route: 065
  5. METOPROLOL [Concomitant]
     Route: 065
  6. TIAZAC [Concomitant]
     Route: 065
  7. VITAMINS (UNSPECIFIED) [Concomitant]
     Route: 065
  8. CALCIUM (UNSPECIFIED) [Concomitant]
     Route: 065
  9. COUMADIN [Concomitant]
     Route: 065

REACTIONS (4)
  - ACUTE MYOCARDIAL INFARCTION [None]
  - ANGINA PECTORIS [None]
  - ANGIOPLASTY [None]
  - DIZZINESS [None]
